FAERS Safety Report 8953327 (Version 1)
Quarter: 2012Q4

REPORT INFORMATION
  Report Type: 
  Country: FR (occurrence: FR)
  Receive Date: 20121206
  Receipt Date: 20121206
  Transmission Date: 20130627
  Serious: Yes (Hospitalization)
  Sender: FDA-Public Use
  Company Number: FR-JNJFOC-20121115311

PATIENT
  Age: 76 Year
  Sex: Male

DRUGS (6)
  1. XARELTO [Suspect]
     Indication: THROMBOSIS PROPHYLAXIS
     Route: 048
     Dates: start: 20121006, end: 20121030
  2. XARELTO [Suspect]
     Indication: HIP SURGERY
     Route: 048
     Dates: start: 20121006, end: 20121030
  3. AMLODIPINE [Concomitant]
     Route: 065
  4. ACUPAN [Concomitant]
  5. PARACETAMOL [Concomitant]
     Route: 065
  6. CONTRAMAL [Concomitant]
     Route: 065

REACTIONS (4)
  - Haematoma [Recovering/Resolving]
  - Anaemia [Recovering/Resolving]
  - Haemorrhage [Recovered/Resolved]
  - Malaise [Recovered/Resolved]
